FAERS Safety Report 20868209 (Version 1)
Quarter: 2022Q2

REPORT INFORMATION
  Report Type: Spontaneous
  Country: US (occurrence: None)
  Receive Date: 20220524
  Receipt Date: 20220524
  Transmission Date: 20220721
  Serious: No
  Sender: FDA-Public Use
  Company Number: None

PATIENT
  Age: 49 Year
  Sex: Male
  Weight: 134.26 kg

DRUGS (2)
  1. OLUMIANT [Suspect]
     Active Substance: BARICITINIB
     Indication: Rheumatoid arthritis
     Dosage: FREQUENCY : DAILY;?
     Route: 058
     Dates: start: 202107
  2. OLUMIANT [Suspect]
     Active Substance: BARICITINIB
     Indication: Ankylosing spondylitis

REACTIONS (2)
  - Oropharyngeal pain [None]
  - Cough [None]
